FAERS Safety Report 7425045-9 (Version None)
Quarter: 2011Q2

REPORT INFORMATION
  Report Type: 
  Country: None (occurrence: None)
  Receive Date: 20110420
  Receipt Date: 20110414
  Transmission Date: 20111010
  Serious: Yes (Hospitalization, Other)
  Sender: FDA-Public Use
  Company Number: DE-AMGEN-DEUSP2011020378

PATIENT
  Age: 65 Year
  Sex: Male
  Weight: 98 kg

DRUGS (3)
  1. ALLOPURINOL [Concomitant]
     Dosage: 100 MG, 1X/DAY
  2. ENBREL [Suspect]
     Indication: ANKYLOSING SPONDYLITIS
     Dosage: 50 MG, WEEKLY
     Route: 058
     Dates: start: 20080501, end: 20110401
  3. METHOTREXATE [Concomitant]
     Dosage: 20 MG, WEEKLY
     Dates: start: 20080101

REACTIONS (1)
  - BLADDER CANCER STAGE I, WITHOUT CANCER IN SITU [None]
